FAERS Safety Report 5729912-3 (Version None)
Quarter: 2008Q2

REPORT INFORMATION
  Report Type: 
  Country: None (occurrence: None)
  Receive Date: 20080502
  Receipt Date: 20080416
  Transmission Date: 20081010
  Serious: Yes (Hospitalization)
  Sender: FDA-Public Use
  Company Number: 060002L08USA

PATIENT
  Age: 33 Year
  Sex: Female

DRUGS (1)
  1. CLOMIPHENE CITRATE [Suspect]
     Indication: OVULATION INDUCTION
     Dosage: CYCLE

REACTIONS (5)
  - ABDOMINAL DISCOMFORT [None]
  - BREAST TENDERNESS [None]
  - HOT FLUSH [None]
  - MYOCARDIAL INFARCTION [None]
  - NAUSEA [None]
